FAERS Safety Report 7420492-3 (Version None)
Quarter: 2011Q2

REPORT INFORMATION
  Report Type: 
  Country: None (occurrence: None)
  Receive Date: 20110418
  Receipt Date: 20110407
  Transmission Date: 20111010
  Serious: Yes (Other)
  Sender: FDA-Public Use
  Company Number: US-AMGEN-USASP2011018548

PATIENT
  Sex: Female

DRUGS (4)
  1. ARANESP [Suspect]
     Indication: DIALYSIS
  2. ARANESP [Suspect]
     Indication: RENAL FAILURE CHRONIC
     Dosage: UNK
  3. PROCRIT [Suspect]
     Indication: DIALYSIS
  4. PROCRIT [Suspect]
     Indication: RENAL FAILURE CHRONIC
     Dosage: UNK

REACTIONS (1)
  - HALLUCINATION [None]
